FAERS Safety Report 23860162 (Version 1)
Quarter: 2024Q2

REPORT INFORMATION
  Report Type: Spontaneous
  Country: CR (occurrence: None)
  Receive Date: 20240515
  Receipt Date: 20240515
  Transmission Date: 20240716
  Serious: Yes (Other)
  Sender: FDA-Public Use
  Company Number: CR-ROCHE-3521875

PATIENT
  Age: 65 Year
  Sex: Male

DRUGS (2)
  1. ATEZOLIZUMAB [Suspect]
     Active Substance: ATEZOLIZUMAB
     Indication: Hepatocellular carcinoma
     Route: 065
     Dates: start: 202209
  2. BEVACIZUMAB [Suspect]
     Active Substance: BEVACIZUMAB
     Indication: Hepatocellular carcinoma
     Route: 065
     Dates: start: 202209

REACTIONS (9)
  - Duodenal ulcer haemorrhage [Unknown]
  - Epistaxis [Unknown]
  - Gingival bleeding [Unknown]
  - Varices oesophageal [Unknown]
  - Gastric haemorrhage [Unknown]
  - Gastritis erosive [Unknown]
  - Duodenal bulb deformity [Unknown]
  - Ulcer [Unknown]
  - Hepatic encephalopathy [Unknown]

NARRATIVE: CASE EVENT DATE: 20240101
